FAERS Safety Report 7497593-7 (Version None)
Quarter: 2011Q2

REPORT INFORMATION
  Report Type: 
  Country: None (occurrence: None)
  Receive Date: 20110523
  Receipt Date: 20110513
  Transmission Date: 20111010
  Serious: Yes (Other)
  Sender: FDA-Public Use
  Company Number: US-BRACCO-004847

PATIENT
  Sex: Female

DRUGS (39)
  1. GADOLINIUM [Suspect]
     Indication: NUCLEAR MAGNETIC RESONANCE IMAGING ABDOMINAL
     Route: 065
     Dates: start: 20061001, end: 20061001
  2. EPREX [Concomitant]
  3. LORAZEPAM [Concomitant]
  4. FLUTICASONE PROPIONATE [Concomitant]
  5. CALCIJEX [Concomitant]
  6. PROHANCE [Suspect]
     Indication: PHAEOCHROMOCYTOMA
     Route: 065
     Dates: start: 20000417, end: 20000417
  7. PROHANCE [Suspect]
     Indication: CENTRAL NERVOUS SYSTEM LESION
     Route: 065
     Dates: start: 20030114, end: 20030114
  8. ATENOLOL [Concomitant]
  9. EPOGEN [Concomitant]
  10. CALCITRIOL [Concomitant]
  11. CIPROFLOXACIN [Concomitant]
  12. TUMS E-X [Concomitant]
  13. PROHANCE [Suspect]
     Indication: NUCLEAR MAGNETIC RESONANCE IMAGING ABDOMINAL
     Route: 065
     Dates: start: 20000217, end: 20000217
  14. MAGNEVIST [Suspect]
     Indication: NUCLEAR MAGNETIC RESONANCE IMAGING BRAIN
     Route: 042
     Dates: start: 20000714, end: 20000714
  15. RABEPRAZOLE SODIUM [Concomitant]
  16. PHENOXYBENZAMINE [Concomitant]
  17. CALCIUM CARBONATE [Concomitant]
  18. IBUPROFEN [Concomitant]
  19. FLUDROCORTISONE ACETATE [Concomitant]
  20. PROHANCE [Suspect]
     Indication: SPINAL CORD DISORDER
     Route: 065
     Dates: start: 20000217, end: 20000217
  21. MAGNEVIST [Suspect]
     Indication: NERVOUS SYSTEM DISORDER
     Route: 042
     Dates: start: 20000714, end: 20000714
  22. PREDNISONE [Concomitant]
  23. HEPARIN SODIUM [Concomitant]
  24. VITAMIN B COMPLEX CAP [Concomitant]
  25. VITAMINS WITH MINERALS [Concomitant]
  26. VENOFER [Concomitant]
  27. DIPHENHYDRAMINE HYDROCHLORIDE [Concomitant]
  28. ALENDRONATE SODIUM [Concomitant]
  29. EPOETIN NOS [Concomitant]
  30. PROHANCE [Suspect]
     Indication: NUCLEAR MAGNETIC RESONANCE IMAGING BRAIN
     Route: 065
     Dates: start: 20060110, end: 20060110
  31. LABETALOL [Concomitant]
  32. HYDROCORTISONE [Concomitant]
  33. SSKI [Concomitant]
  34. HYDROCORTISONE [Concomitant]
  35. FLUDROCORTISONE ACETATE [Concomitant]
  36. PROHANCE [Suspect]
     Indication: NUCLEAR MAGNETIC RESONANCE IMAGING
     Route: 065
     Dates: start: 20010810, end: 20010810
  37. APO-DOXAZOSIN [Concomitant]
  38. HEPARIN [Concomitant]
  39. DOXAZOSIN MESYLATE [Concomitant]

REACTIONS (1)
  - NEPHROGENIC SYSTEMIC FIBROSIS [None]
